FAERS Safety Report 9311849 (Version 2)
Quarter: 2013Q2

REPORT INFORMATION
  Report Type: Spontaneous
  Country: US (occurrence: US)
  Receive Date: 20130528
  Receipt Date: 20130614
  Transmission Date: 20140414
  Serious: Yes (Death, Hospitalization)
  Sender: FDA-Public Use
  Company Number: PHHY2013US052035

PATIENT
  Age: 51 Year
  Sex: Female

DRUGS (4)
  1. 5-FLUOROURACIL [Suspect]
     Indication: SMALL INTESTINE CARCINOMA RECURRENT
     Route: 042
  2. FOLINIC ACID [Suspect]
     Indication: SMALL INTESTINE CARCINOMA RECURRENT
     Route: 042
  3. OXALIPLATIN [Suspect]
     Indication: SMALL INTESTINE CARCINOMA RECURRENT
     Route: 042
  4. IRINOTECAN [Suspect]
     Indication: SMALL INTESTINE CARCINOMA RECURRENT
     Route: 042

REACTIONS (16)
  - Death [Fatal]
  - Multi-organ failure [Unknown]
  - Ammonia increased [Recovered/Resolved]
  - Dilatation ventricular [Recovered/Resolved]
  - Hypokinesia [Recovered/Resolved]
  - Venous thrombosis [Recovered/Resolved]
  - Pulmonary oedema [Recovered/Resolved]
  - Pleural effusion [Recovered/Resolved]
  - Renal failure [Recovered/Resolved]
  - Pancytopenia [Recovered/Resolved]
  - Neutropenia [Recovered/Resolved]
  - Pyrexia [Recovered/Resolved]
  - Nausea [Recovered/Resolved]
  - Vomiting [Recovered/Resolved]
  - Depression [Recovered/Resolved]
  - Adenocarcinoma [Unknown]
